FAERS Safety Report 14619414 (Version 4)
Quarter: 2018Q4

REPORT INFORMATION
  Report Type: Report from Study
  Country: None (occurrence: CO)
  Receive Date: 20180309
  Receipt Date: 20181005
  Transmission Date: 20190204
  Serious: Yes (Hospitalization, Other)
  Sender: FDA-Public Use
  Company Number: CO-ABBVIE-18K-036-2282025-00

PATIENT
  Age: 35 Year
  Sex: Female
  Weight: 80 kg

DRUGS (1)
  1. HUMIRA [Suspect]
     Active Substance: ADALIMUMAB
     Indication: HIDRADENITIS
     Route: 058
     Dates: start: 20171026, end: 20171214

REACTIONS (20)
  - Post procedural discharge [Recovering/Resolving]
  - Hidradenitis [Not Recovered/Not Resolved]
  - Schizophrenia [Not Recovered/Not Resolved]
  - Asthenia [Unknown]
  - Chest pain [Unknown]
  - Delirium [Not Recovered/Not Resolved]
  - Depression [Not Recovered/Not Resolved]
  - Impaired healing [Unknown]
  - Wound complication [Recovering/Resolving]
  - Muscle spasms [Not Recovered/Not Resolved]
  - Weight decreased [Not Recovered/Not Resolved]
  - Menorrhagia [Not Recovered/Not Resolved]
  - Wound dehiscence [Unknown]
  - Skin lesion [Unknown]
  - Wound [Unknown]
  - Back pain [Unknown]
  - Decreased appetite [Not Recovered/Not Resolved]
  - Pain in extremity [Not Recovered/Not Resolved]
  - Scar [Unknown]
  - Dermatitis allergic [Unknown]

NARRATIVE: CASE EVENT DATE: 201803
